FAERS Safety Report 16384099 (Version 2)
Quarter: 2019Q2

REPORT INFORMATION
  Report Type: Report from Study
  Country: IT (occurrence: IT)
  Receive Date: 20190603
  Receipt Date: 20190607
  Transmission Date: 20190711
  Serious: Yes (Other)
  Sender: FDA-Public Use
  Company Number: IT-ACCORD-130332

PATIENT
  Age: 77 Year
  Sex: Female

DRUGS (5)
  1. RAMIPRIL. [Suspect]
     Active Substance: RAMIPRIL
     Indication: HYPERTENSION
     Route: 048
     Dates: start: 20190110, end: 20190123
  2. FUROSEMIDE. [Concomitant]
     Active Substance: FUROSEMIDE
  3. AMIODARONE [Concomitant]
     Active Substance: AMIODARONE
  4. ACETYLSALICYLIC ACID [Concomitant]
     Active Substance: ASPIRIN
     Route: 048
  5. BISOPROLOL [Concomitant]
     Active Substance: BISOPROLOL

REACTIONS (4)
  - Hypotension [Recovering/Resolving]
  - Loss of consciousness [Recovering/Resolving]
  - Syncope [Recovering/Resolving]
  - Orthostatic hypotension [Recovering/Resolving]

NARRATIVE: CASE EVENT DATE: 20190123
